FAERS Safety Report 14219406 (Version 3)
Quarter: 2018Q1

REPORT INFORMATION
  Report Type: Spontaneous
  Country: US (occurrence: US)
  Receive Date: 20171123
  Receipt Date: 20180316
  Transmission Date: 20180508
  Serious: Yes (Hospitalization)
  Sender: FDA-Public Use
  Company Number: US-JNJFOC-20171111297

PATIENT
  Age: 58 Year
  Sex: Male

DRUGS (17)
  1. ASPIRIN. [Concomitant]
     Active Substance: ASPIRIN
     Indication: CARDIAC DISORDER
     Route: 065
     Dates: start: 2010
  2. ENALAPRIL [Concomitant]
     Active Substance: ENALAPRIL
     Indication: HYPERTENSION
     Route: 065
     Dates: start: 2015
  3. LANTUS [Concomitant]
     Active Substance: INSULIN GLARGINE
     Dosage: 40 UNITS TWICE/DAY
     Route: 065
     Dates: start: 2003, end: 2015
  4. TRESIBA [Concomitant]
     Active Substance: INSULIN DEGLUDEC
     Indication: DIABETES MELLITUS
     Dosage: 30 UNITS BEFORE BEDTIME
     Route: 065
     Dates: start: 2015
  5. TESTOSTERONE CYPIONATE. [Concomitant]
     Active Substance: TESTOSTERONE CYPIONATE
     Indication: BLOOD TESTOSTERONE DECREASED
     Route: 065
     Dates: start: 201708
  6. PIOGLITAZONE. [Concomitant]
     Active Substance: PIOGLITAZONE
     Indication: DIABETES MELLITUS
     Route: 065
     Dates: start: 2017
  7. HUMALOG [Concomitant]
     Active Substance: INSULIN LISPRO
     Dosage: 20 UNITS BEFORE MEALS
     Route: 065
     Dates: start: 2007, end: 2015
  8. GABAPENTIN. [Concomitant]
     Active Substance: GABAPENTIN
     Indication: PAIN IN EXTREMITY
     Route: 065
     Dates: start: 2010
  9. INVOKANA [Suspect]
     Active Substance: CANAGLIFLOZIN
     Indication: TYPE 2 DIABETES MELLITUS
     Route: 048
     Dates: start: 20141102
  10. TANZEUM [Concomitant]
     Active Substance: ALBIGLUTIDE
     Route: 065
     Dates: start: 2015, end: 2016
  11. METFORMIN [Concomitant]
     Active Substance: METFORMIN HYDROCHLORIDE
     Indication: DIABETES MELLITUS
     Route: 065
     Dates: start: 2014, end: 2017
  12. GLIPIZIDE. [Concomitant]
     Active Substance: GLIPIZIDE
     Indication: DIABETES MELLITUS
     Route: 065
     Dates: start: 2014
  13. METOPROLOL. [Concomitant]
     Active Substance: METOPROLOL
     Indication: HYPERTENSION
     Route: 065
     Dates: start: 2015
  14. VICTOZA [Concomitant]
     Active Substance: LIRAGLUTIDE
     Route: 065
     Dates: start: 2008, end: 2015
  15. SIMVASTATIN. [Concomitant]
     Active Substance: SIMVASTATIN
     Indication: BLOOD CHOLESTEROL INCREASED
     Route: 065
     Dates: start: 2010
  16. ESCITALOPRAM [Concomitant]
     Active Substance: ESCITALOPRAM OXALATE
     Indication: DEPRESSION
     Route: 065
     Dates: start: 2017
  17. TRULICITY [Concomitant]
     Active Substance: DULAGLUTIDE
     Route: 065
     Dates: start: 2015

REACTIONS (6)
  - Foot amputation [Unknown]
  - Metatarsal excision [Unknown]
  - Amputation [Recovering/Resolving]
  - Osteomyelitis [Unknown]
  - Acute kidney injury [Recovering/Resolving]
  - Osteomyelitis [Recovering/Resolving]

NARRATIVE: CASE EVENT DATE: 201411
